FAERS Safety Report 13905284 (Version 1)
Quarter: 2017Q3

REPORT INFORMATION
  Report Type: Report from Study
  Country: BR (occurrence: BR)
  Receive Date: 20170825
  Receipt Date: 20170825
  Transmission Date: 20171127
  Serious: Yes (Other)
  Sender: FDA-Public Use
  Company Number: PHHY2016BR082480

PATIENT
  Sex: Female
  Weight: 59 kg

DRUGS (2)
  1. SANDOSTATIN LAR DEPOT [Suspect]
     Active Substance: OCTREOTIDE ACETATE
     Indication: HEPATIC NEOPLASM
     Dosage: 30 MG, QMO
     Route: 065
     Dates: start: 201508, end: 201706
  2. SANDOSTATIN LAR DEPOT [Suspect]
     Active Substance: OCTREOTIDE ACETATE
     Indication: NEUROENDOCRINE TUMOUR

REACTIONS (11)
  - Osteoarthritis [Unknown]
  - Headache [Unknown]
  - Rhinorrhoea [Unknown]
  - Malaise [Unknown]
  - Nasopharyngitis [Unknown]
  - Needle issue [Unknown]
  - Stomach mass [Unknown]
  - Dysphonia [Unknown]
  - Blood pressure increased [Unknown]
  - Influenza [Unknown]
  - Cough [Unknown]
